FAERS Safety Report 16285765 (Version 1)
Quarter: 2019Q2

REPORT INFORMATION
  Report Type: Spontaneous
  Country: US (occurrence: US)
  Receive Date: 20190506
  Receipt Date: 20190506
  Transmission Date: 20190711
  Serious: No
  Sender: FDA-Public Use
  Company Number: None

PATIENT
  Age: 48 Year
  Sex: Female
  Weight: 111.6 kg

DRUGS (1)
  1. UNITHROID [Suspect]
     Active Substance: LEVOTHYROXINE SODIUM
     Indication: AUTOIMMUNE THYROIDITIS
     Dosage: ?          QUANTITY:1 TABLET(S);?
     Route: 048
     Dates: start: 20190130, end: 20190501

REACTIONS (7)
  - Tachycardia [None]
  - Irritability [None]
  - Nausea [None]
  - Muscle spasms [None]
  - Alopecia [None]
  - Weight increased [None]
  - Tremor [None]

NARRATIVE: CASE EVENT DATE: 20190212
